FAERS Safety Report 14741804 (Version 1)
Quarter: 2018Q2

REPORT INFORMATION
  Report Type: Spontaneous
  Country: NL (occurrence: NL)
  Receive Date: 20180410
  Receipt Date: 20180410
  Transmission Date: 20180711
  Serious: Yes (Other)
  Sender: FDA-Public Use
  Company Number: NL-TEVA-2018-NL-879807

PATIENT
  Sex: Female
  Weight: 52 kg

DRUGS (3)
  1. FEXOFENADINE 180MG [Concomitant]
     Active Substance: FEXOFENADINE HYDROCHLORIDE
     Indication: HYPERSENSITIVITY
     Dosage: 180 MILLIGRAM DAILY;
     Route: 048
     Dates: start: 200911
  2. ALENDRONINEZUUR 70 PCH, TABLETTEN 70 MG [Suspect]
     Active Substance: ALENDRONATE SODIUM
     Indication: OSTEOPOROSIS
     Route: 048
     Dates: start: 20110905, end: 201612
  3. AVAMYS 27,5 MCG [Concomitant]
     Indication: HYPERSENSITIVITY
     Dosage: 27.5 MICROGRAM DAILY;
     Route: 045
     Dates: start: 201507

REACTIONS (9)
  - Memory impairment [Recovered/Resolved with Sequelae]
  - Mood altered [Recovered/Resolved with Sequelae]
  - Somnolence [Recovered/Resolved with Sequelae]
  - Mental impairment [Recovered/Resolved with Sequelae]
  - Decreased activity [Recovered/Resolved with Sequelae]
  - Disturbance in attention [Recovered/Resolved with Sequelae]
  - Loss of employment [Recovered/Resolved with Sequelae]
  - Apathy [Recovered/Resolved with Sequelae]
  - Insomnia [Recovered/Resolved with Sequelae]
